FAERS Safety Report 24818067 (Version 1)
Quarter: 2025Q1

REPORT INFORMATION
  Report Type: Spontaneous
  Country: RU (occurrence: RU)
  Receive Date: 20250108
  Receipt Date: 20250108
  Transmission Date: 20250409
  Serious: Yes (Hospitalization, Other)
  Sender: CSL BEHRING
  Company Number: RU-BEH-2025190900

PATIENT
  Age: 37 Year
  Sex: Female

DRUGS (1)
  1. PRIVIGEN [Suspect]
     Active Substance: HUMAN IMMUNOGLOBULIN G
     Dosage: 100 ML, TID QOD
     Route: 065

REACTIONS (3)
  - Pericardial effusion [Unknown]
  - Pulmonary hypoplasia [Unknown]
  - Maternal exposure during pregnancy [Unknown]
